FAERS Safety Report 8408010-4 (Version None)
Quarter: 2012Q2

REPORT INFORMATION
  Report Type: 
  Country: None (occurrence: None)
  Receive Date: 20120604
  Receipt Date: 20120525
  Transmission Date: 20120825
  Serious: Yes (Hospitalization, Disabling)
  Sender: FDA-Public Use
  Company Number: US-MERCK-1203USA03429

PATIENT
  Age: 55 Year
  Sex: Female
  Weight: 61 kg

DRUGS (9)
  1. FOSAMAX [Suspect]
     Route: 048
  2. SIMVASTATIN [Concomitant]
     Indication: HYPERCHOLESTEROLAEMIA
     Route: 048
  3. HYDROCHLOROTHIAZIDE [Concomitant]
     Indication: HYPERTENSION
     Route: 048
  4. FOSAMAX [Suspect]
     Indication: OSTEOPOROSIS
     Route: 048
     Dates: start: 19970701, end: 20100301
  5. FOSAMAX [Suspect]
     Route: 048
  6. VITAMIN D (UNSPECIFIED) [Concomitant]
     Indication: OSTEOPOROSIS
     Route: 065
  7. CALCIUM (UNSPECIFIED) [Concomitant]
     Indication: OSTEOPOROSIS
     Route: 065
  8. FOSAMAX PLUS D [Suspect]
     Route: 048
  9. ATENOLOL [Concomitant]
     Indication: HYPERTENSION
     Route: 048
     Dates: start: 19950410

REACTIONS (22)
  - OSTEOPOROSIS [None]
  - STRESS FRACTURE [None]
  - METATARSALGIA [None]
  - POSTMENOPAUSAL HAEMORRHAGE [None]
  - OSTEOARTHRITIS [None]
  - FEMUR FRACTURE [None]
  - UPPER RESPIRATORY TRACT INFECTION [None]
  - CORNEAL EROSION [None]
  - URTICARIA [None]
  - CORNEAL ABRASION [None]
  - DISLOCATION OF VERTEBRA [None]
  - ATYPICAL FEMUR FRACTURE [None]
  - TENDONITIS [None]
  - SPINAL OSTEOARTHRITIS [None]
  - COMPLEX REGIONAL PAIN SYNDROME [None]
  - GASTROINTESTINAL DISORDER [None]
  - ANGIOEDEMA [None]
  - LOW TURNOVER OSTEOPATHY [None]
  - CARDIAC DISORDER [None]
  - ARTHROPATHY [None]
  - KNEE DEFORMITY [None]
  - EXOSTOSIS [None]
